FAERS Safety Report 4453614-7 (Version None)
Quarter: 2004Q3

REPORT INFORMATION
  Report Type: 
  Country: None (occurrence: None)
  Receive Date: 20040920
  Receipt Date: 20040907
  Transmission Date: 20050211
  Serious: Yes (Other)
  Sender: FDA-Public Use
  Company Number: GR-BRISTOL-MYERS SQUIBB COMPANY-12703609

PATIENT

DRUGS (4)
  1. CARBOPLATIN [Suspect]
     Dosage: 5 OR 6 AUC ON DAY 1
     Route: 042
     Dates: start: 20021001, end: 20031201
  2. GEMCITABINE [Suspect]
     Dosage: DAYS 1 AND 8
     Route: 042
     Dates: start: 20021001, end: 20031201
  3. DEXAMETHASONE [Concomitant]
     Indication: PREMEDICATION
  4. ONDANSETRON [Concomitant]
     Indication: PREMEDICATION

REACTIONS (2)
  - DYSPNOEA [None]
  - PULMONARY FUNCTION TEST DECREASED [None]
